FAERS Safety Report 16954083 (Version 2)
Quarter: 2019Q4

REPORT INFORMATION
  Report Type: Spontaneous
  Country: CA (occurrence: CA)
  Receive Date: 20191023
  Receipt Date: 20191118
  Transmission Date: 20200122
  Serious: Yes (Hospitalization, Other)
  Sender: FDA-Public Use
  Company Number: CA-SHIRE-CA201934756

PATIENT

DRUGS (2)
  1. GAMMAGARD LIQUID [Suspect]
     Active Substance: HUMAN IMMUNOGLOBULIN G
     Indication: MYASTHENIA GRAVIS
     Dosage: 10 GRAM, 1X/DAY:QD
     Route: 042
     Dates: start: 20190922, end: 20190922
  2. GAMMAGARD LIQUID [Suspect]
     Active Substance: HUMAN IMMUNOGLOBULIN G
     Dosage: 20 GRAM, 1X/DAY:QD
     Route: 042
     Dates: start: 20190922, end: 20190922

REACTIONS (8)
  - Photosensitivity reaction [Recovered/Resolved]
  - Intentional product use issue [Unknown]
  - Dyspnoea [Recovered/Resolved]
  - Nausea [Recovered/Resolved]
  - Headache [Recovered/Resolved]
  - Tachypnoea [Recovered/Resolved]
  - Chills [Recovered/Resolved]
  - Infusion related reaction [Unknown]

NARRATIVE: CASE EVENT DATE: 20190922
